FAERS Safety Report 8802699 (Version 2)
Quarter: 2013Q1

REPORT INFORMATION
  Report Type: Report from Study
  Country: CN (occurrence: CN)
  Receive Date: 20120921
  Receipt Date: 20130206
  Transmission Date: 20140127
  Serious: Yes (Hospitalization)
  Sender: FDA-Public Use
  Company Number: CN-ASTRAZENECA-2012SE71413

PATIENT
  Age: 31194 Day
  Sex: Male
  Weight: 34 kg

DRUGS (4)
  1. SYMBICORT [Suspect]
     Indication: CHRONIC OBSTRUCTIVE PULMONARY DISEASE
     Dosage: 200/6 MCG TWO INHALATIONS BID
     Route: 055
     Dates: start: 20120802
  2. ATROVENT [Suspect]
     Indication: CHRONIC OBSTRUCTIVE PULMONARY DISEASE
     Dosage: TWO INHALATIONS, 20 MCG/INHALATION FOUR TIMES A DAY
     Route: 055
     Dates: start: 20120802
  3. THEOPHYLLINE [Suspect]
     Indication: CHRONIC OBSTRUCTIVE PULMONARY DISEASE
     Dosage: 1 TABLET, 0.1 G/TABLET TWICE DAILY
     Route: 048
     Dates: start: 20120802
  4. VENTOLIN [Concomitant]
     Indication: CHRONIC OBSTRUCTIVE PULMONARY DISEASE
     Dosage: 0.1 MG/INHALATION AS REQUIRED
     Route: 055
     Dates: start: 20120802

REACTIONS (3)
  - Fungal oesophagitis [Recovered/Resolved]
  - Chronic obstructive pulmonary disease [Recovered/Resolved]
  - Gastritis atrophic [Recovered/Resolved]
